FAERS Safety Report 21557643 (Version 1)
Quarter: 2022Q4

REPORT INFORMATION
  Report Type: Spontaneous
  Country: US (occurrence: None)
  Receive Date: 20221104
  Receipt Date: 20221104
  Transmission Date: 20230113
  Serious: Yes (Hospitalization)
  Sender: FDA-Public Use
  Company Number: None

PATIENT
  Age: 61 Year
  Sex: Female

DRUGS (1)
  1. TOBRAMYCIN [Suspect]
     Active Substance: TOBRAMYCIN
     Dosage: 300MG BID RESPIRATORY (INHALATION)
     Route: 055

REACTIONS (1)
  - Pseudomonas infection [None]

NARRATIVE: CASE EVENT DATE: 20221027
